FAERS Safety Report 7066620-3 (Version None)
Quarter: 2010Q4

REPORT INFORMATION
  Report Type: 
  Country: None (occurrence: None)
  Receive Date: 20101027
  Receipt Date: 20100824
  Transmission Date: 20110411
  Serious: No
  Sender: FDA-Public Use
  Company Number: US-WYE-H16261710

PATIENT
  Sex: Female
  Weight: 70.37 kg

DRUGS (4)
  1. PREMPRO [Suspect]
     Dosage: 0.45MG ONCE DAILY
     Route: 048
  2. PREMPRO [Suspect]
     Dosage: POSSIBLY 0.625MG
     Route: 048
     Dates: start: 19980101
  3. PREMPRO [Suspect]
     Dosage: 0.45MG EVERY OTHER DAY
     Route: 048
     Dates: start: 20090101, end: 20100101
  4. PREMPRO [Suspect]
     Dosage: 0.45MG EVERY 3 DAYS
     Route: 048
     Dates: start: 20100101

REACTIONS (7)
  - ABDOMINAL DISTENSION [None]
  - DRUG INEFFECTIVE [None]
  - INSOMNIA [None]
  - PRODUCT PACKAGING ISSUE [None]
  - PRODUCT TASTE ABNORMAL [None]
  - TABLET ISSUE [None]
  - WEIGHT INCREASED [None]
